FAERS Safety Report 19423966 (Version 1)
Quarter: 2021Q2

REPORT INFORMATION
  Report Type: Spontaneous
  Country: IT (occurrence: IT)
  Receive Date: 20210616
  Receipt Date: 20210616
  Transmission Date: 20210717
  Serious: Yes (Other)
  Sender: FDA-Public Use
  Company Number: IT-MYLANLABS-2021M1034863

PATIENT
  Age: 20 Year
  Sex: Male

DRUGS (8)
  1. CARBOLITHIUM [Concomitant]
     Active Substance: LITHIUM CARBONATE
     Dosage: 600 MILLIGRAM, QD, 600 MILLIGRAM, QD, ON FOURTH DAY, CARBOLITHIUM INCREASED TO 600 MG/DAY
     Route: 065
  2. SERTRALINE [Concomitant]
     Active Substance: SERTRALINE HYDROCHLORIDE
     Dosage: 75 MILLIGRAM, QD, ON THE SECOND DAY, SERTRALINE WAS INCREASED TO 75 MG/DAY
     Route: 065
  3. VALPROIC ACID. [Concomitant]
     Active Substance: VALPROIC ACID
     Indication: DEPRESSIVE SYMPTOM
     Dosage: 50 MILLIGRAM, QD
     Route: 065
  4. SERTRALINE [Concomitant]
     Active Substance: SERTRALINE HYDROCHLORIDE
     Indication: DEPRESSIVE SYMPTOM
     Dosage: 50 MILLIGRAM, QD
     Route: 065
  5. ARIPIPRAZOLE. [Suspect]
     Active Substance: ARIPIPRAZOLE
     Dosage: 7.5 MILLIGRAM, QD, INCREASED TO 7.5 MG ON THE SIXTH DAY
     Route: 065
  6. ARIPIPRAZOLE. [Suspect]
     Active Substance: ARIPIPRAZOLE
     Indication: BIPOLAR DISORDER
     Dosage: 5 MILLIGRAM, QD, INTRODUCED ON FOURTH DAY
     Route: 065
  7. GABAPENTIN. [Suspect]
     Active Substance: GABAPENTIN
     Indication: HICCUPS
     Dosage: 100 MILLIGRAM, TWO DOSES OF 100MG GABAPENTIN WERE ADMINISTERED..
     Route: 065
  8. CARBOLITHIUM [Concomitant]
     Active Substance: LITHIUM CARBONATE
     Indication: BIPOLAR DISORDER
     Dosage: ON THE SECOND DAY, CARBOLITHIUM 300 MG/DAY WAS ADDED
     Route: 065

REACTIONS (2)
  - Off label use [Unknown]
  - Hiccups [Recovered/Resolved]
